FAERS Safety Report 5225745-5 (Version None)
Quarter: 2007Q1

REPORT INFORMATION
  Report Type: 
  Country: None (occurrence: None)
  Receive Date: 20070131
  Receipt Date: 20070131
  Transmission Date: 20070707
  Serious: Yes (Hospitalization)
  Sender: FDA-Public Use
  Company Number: None

PATIENT
  Age: 88 Year
  Sex: Female
  Weight: 54.4316 kg

DRUGS (4)
  1. CEFTIN [Suspect]
     Indication: BRONCHITIS
     Dosage: ONE TWICE DAILY ORALLY
     Route: 048
     Dates: start: 20070101, end: 20070115
  2. CEFTIN [Suspect]
     Indication: CHRONIC OBSTRUCTIVE PULMONARY DISEASE
     Dosage: ONE TWICE DAILY ORALLY
     Route: 048
     Dates: start: 20070101, end: 20070115
  3. AVELOX [Suspect]
     Indication: BRONCHITIS
     Dosage: ONE TABLET ONCE DAILY ORALLY
     Route: 048
     Dates: start: 20070116, end: 20070123
  4. OXYGEN [Concomitant]

REACTIONS (8)
  - ASTHENIA [None]
  - BLOOD URINE PRESENT [None]
  - FAECAL INCONTINENCE [None]
  - FAECES DISCOLOURED [None]
  - OEDEMA [None]
  - RASH ERYTHEMATOUS [None]
  - VOMITING [None]
  - WHEEZING [None]
